FAERS Safety Report 15077181 (Version 1)
Quarter: 2018Q2

REPORT INFORMATION
  Report Type: Spontaneous
  Country: AT (occurrence: AT)
  Receive Date: 20180627
  Receipt Date: 20180627
  Transmission Date: 20180711
  Serious: Yes (Hospitalization, Disabling, Other)
  Sender: FDA-Public Use
  Company Number: AT-MYLANLABS-07P-009-0415585-00

PATIENT
  Age: 22 Year
  Sex: Female

DRUGS (2)
  1. VALPROIC ACID. [Suspect]
     Active Substance: VALPROIC ACID
     Indication: PARTIAL SEIZURES
     Dosage: 1500 MG, QD
  2. LAMOTRIGINE. [Concomitant]
     Active Substance: LAMOTRIGINE
     Indication: PARTIAL SEIZURES
     Dosage: UNK

REACTIONS (9)
  - Weight increased [Unknown]
  - Hyperammonaemia [Unknown]
  - Hyperprolactinaemia [Unknown]
  - Polycystic ovaries [Unknown]
  - Visual field defect [Recovering/Resolving]
  - Metabolic disorder [Unknown]
  - Retinogram abnormal [Recovering/Resolving]
  - Amenorrhoea [Unknown]
  - Alopecia [Unknown]
